FAERS Safety Report 7600090-9 (Version None)
Quarter: 2011Q2

REPORT INFORMATION
  Report Type: 
  Country: None (occurrence: None)
  Receive Date: 20110629
  Receipt Date: 20110616
  Transmission Date: 20111010
  Serious: Yes (Hospitalization, Other)
  Sender: FDA-Public Use
  Company Number: 2011MA007666

PATIENT
  Age: 16 Year
  Sex: Female

DRUGS (1)
  1. FEVERALL [Suspect]
     Indication: OVERDOSE
     Dosage: 12.5 G;

REACTIONS (6)
  - OVERDOSE [None]
  - HYPOCHROMIC ANAEMIA [None]
  - VOMITING [None]
  - RENAL FAILURE [None]
  - TOXICITY TO VARIOUS AGENTS [None]
  - ABDOMINAL PAIN [None]
